FAERS Safety Report 17764187 (Version 2)
Quarter: 2020Q2

REPORT INFORMATION
  Report Type: Report from Study
  Country: None (occurrence: BR)
  Receive Date: 20200511
  Receipt Date: 20200522
  Transmission Date: 20200714
  Serious: Yes (Death, Other)
  Sender: FDA-Public Use
  Company Number: BR-ABBVIE-20K-020-3397832-00

PATIENT
  Age: 41 Year
  Sex: Female

DRUGS (1)
  1. HUMIRA [Suspect]
     Active Substance: ADALIMUMAB
     Indication: RHEUMATOID ARTHRITIS
     Route: 058
     Dates: start: 20130204

REACTIONS (6)
  - Acute pulmonary oedema [Fatal]
  - Myocardial infarction [Fatal]
  - Hypertension [Fatal]
  - Hypertrophic cardiomyopathy [Fatal]
  - Cerebrovascular accident [Fatal]
  - Uterine cancer [Unknown]

NARRATIVE: CASE EVENT DATE: 20191105
